FAERS Safety Report 15330145 (Version 1)
Quarter: 2018Q3

REPORT INFORMATION
  Report Type: Spontaneous
  Country: DE (occurrence: DE)
  Receive Date: 20180829
  Receipt Date: 20180829
  Transmission Date: 20181010
  Serious: Yes (Other)
  Sender: FDA-Public Use
  Company Number: DE-TEVA-2018-DE-949829

PATIENT
  Age: 76 Year
  Sex: Female

DRUGS (4)
  1. TECFIDERA [Suspect]
     Active Substance: DIMETHYL FUMARATE
     Indication: RELAPSING-REMITTING MULTIPLE SCLEROSIS
     Dosage: 480 MILLIGRAM DAILY; DISCONTINUED FROM JANUARY 2016 TO JUNE 2016, AND AGAIN FROM JANUARY 2017 TO JUN
     Route: 065
     Dates: start: 201404
  2. TECFIDERA [Suspect]
     Active Substance: DIMETHYL FUMARATE
     Indication: RELAPSING-REMITTING MULTIPLE SCLEROSIS
     Dosage: 480 MILLIGRAM DAILY;
     Route: 065
     Dates: start: 20170601
  3. TRIAMCINOLONE [Suspect]
     Active Substance: TRIAMCINOLONE
     Indication: RELAPSING-REMITTING MULTIPLE SCLEROSIS
     Dosage: GIVEN AS MONOTHERAPY AND ALSO WITH DIMETHYL FUMARATE IN CYCLES, 2?3 MONTHS
     Route: 037
  4. MITOXANTRONE [Suspect]
     Active Substance: MITOXANTRONE HYDROCHLORIDE
     Indication: RELAPSING-REMITTING MULTIPLE SCLEROSIS
     Dosage: CUMULATIVE DOSE OF 68 MG/M2
     Route: 065
     Dates: start: 201310, end: 201401

REACTIONS (1)
  - Progressive multifocal leukoencephalopathy [Recovering/Resolving]
